FAERS Safety Report 10213384 (Version 1)
Quarter: 2014Q2

REPORT INFORMATION
  Report Type: Spontaneous
  Country: GB (occurrence: GB)
  Receive Date: 20140603
  Receipt Date: 20140603
  Transmission Date: 20141212
  Serious: Yes (Hospitalization, Other)
  Sender: FDA-Public Use
  Company Number: GB-PERRIGO-14GB005488

PATIENT
  Sex: 0

DRUGS (14)
  1. ACETAMINOPHEN 650MG ER 544 [Suspect]
     Indication: BACK PAIN
     Dosage: UNK
     Route: 064
  2. ACETAMINOPHEN 650MG ER 544 [Suspect]
     Indication: STRESS
     Dosage: MATERNAL 1 G
     Route: 064
  3. ACETAMINOPHEN 650MG ER 544 [Suspect]
     Indication: ANAESTHESIA
  4. CO-CODAMOL [Suspect]
     Indication: BACK PAIN
     Dosage: UNK
     Route: 064
  5. CO-CODAMOL [Suspect]
     Indication: STRESS
  6. CO-CODAMOL [Suspect]
     Indication: ANAESTHESIA
  7. ENOXAPARIN [Concomitant]
     Indication: PULMONARY EMBOLISM
     Dosage: MATERNAL 80 MG BID
  8. ENOXAPARIN [Concomitant]
     Dosage: MATERNAL 80 MG SINGLE
  9. THIOPENTAL [Concomitant]
     Indication: ANAESTHESIA
     Dosage: MATERNAL 500 MG
  10. ALFENTANIL [Concomitant]
     Indication: ANAESTHESIA
     Dosage: MATERNAL 1 MG
  11. SUXAMETHONIUM [Concomitant]
     Indication: ANAESTHESIA
     Dosage: MATERNAL 100 MG
  12. MORPHINE [Concomitant]
     Indication: ANAESTHESIA
     Dosage: MATERNAL 10 MG
  13. ROCURONIUM [Concomitant]
     Indication: ANAESTHESIA
     Dosage: MATERNAL 40 MG
  14. CO-AMOXICLAV                       /00756801/ [Concomitant]
     Indication: PRODUCT USED FOR UNKNOWN INDICATION

REACTIONS (4)
  - Overdose [Recovered/Resolved]
  - Blood bilirubin increased [Recovered/Resolved]
  - Transaminases increased [Recovered/Resolved]
  - Foetal exposure during pregnancy [Recovered/Resolved]
